FAERS Safety Report 18199839 (Version 1)
Quarter: 2020Q3

REPORT INFORMATION
  Report Type: Spontaneous
  Country: FR (occurrence: FR)
  Receive Date: 20200826
  Receipt Date: 20200826
  Transmission Date: 20201103
  Serious: Yes (Life-Threatening)
  Sender: FDA-Public Use
  Company Number: FR-MYLANLABS-2020M1073727

PATIENT
  Age: 55 Year
  Sex: Female

DRUGS (6)
  1. CEFAZOLIN [Suspect]
     Active Substance: CEFAZOLIN
     Indication: ANTIBIOTIC THERAPY
     Dosage: 2 GRAM
     Route: 065
     Dates: start: 20200710, end: 20200710
  2. PROPOFOL. [Suspect]
     Active Substance: PROPOFOL
     Indication: GENERAL ANAESTHESIA
     Dosage: NON PR?CIS?
     Route: 042
     Dates: start: 20200710, end: 20200710
  3. SUFENTANIL [Suspect]
     Active Substance: SUFENTANIL
     Indication: ANAESTHESIA
     Dosage: NON PR?CIS?
     Route: 042
     Dates: start: 20200710, end: 20200710
  4. TRACRIUM [Suspect]
     Active Substance: ATRACURIUM BESYLATE
     Indication: MUSCLE RELAXANT THERAPY
     Dosage: NON PR?CSI?
     Route: 042
     Dates: start: 20200710, end: 20200710
  5. KETAMINE [Suspect]
     Active Substance: KETAMINE
     Indication: GENERAL ANAESTHESIA
     Dosage: NON PR?CIS?
     Route: 042
     Dates: start: 20200710, end: 20200710
  6. DEXAMETHASONE. [Suspect]
     Active Substance: DEXAMETHASONE
     Indication: ANTIINFLAMMATORY THERAPY
     Dosage: NON PR?CIS?
     Route: 042
     Dates: start: 20200710, end: 20200710

REACTIONS (3)
  - Rash [Unknown]
  - Bronchospasm [Recovered/Resolved]
  - Hypotension [Unknown]

NARRATIVE: CASE EVENT DATE: 20200710
